FAERS Safety Report 10216207 (Version 2)
Quarter: 2014Q2

REPORT INFORMATION
  Report Type: Spontaneous
  Country: IT (occurrence: IT)
  Receive Date: 20140604
  Receipt Date: 20140609
  Transmission Date: 20141212
  Serious: Yes (Hospitalization)
  Sender: FDA-Public Use
  Company Number: IT-SA-2014SA068495

PATIENT
  Age: 75 Year
  Sex: Female

DRUGS (16)
  1. SOLOSA [Suspect]
     Indication: MEDICATION ERROR
     Route: 048
     Dates: start: 20130225, end: 20140519
  2. GLUCOBAY [Suspect]
     Indication: MEDICATION ERROR
     Route: 048
     Dates: start: 20130225, end: 20140519
  3. CATAPRESAN [Concomitant]
     Indication: HYPERTENSION
     Dates: start: 20130225, end: 20140519
  4. MINITRAN [Concomitant]
     Dates: start: 20130225, end: 20140519
  5. CARVEDILOL [Concomitant]
     Indication: HYPERTENSION
     Route: 048
     Dates: start: 20130225, end: 20140519
  6. BLOPRESS [Concomitant]
     Indication: HYPERTENSION
     Route: 048
     Dates: start: 20130225, end: 20140519
  7. PLAVIX [Concomitant]
     Route: 048
     Dates: start: 20130225, end: 20140519
  8. CRESTOR [Concomitant]
     Route: 048
     Dates: start: 20130225, end: 20140519
  9. CARDIOASPIRIN [Concomitant]
     Route: 048
     Dates: start: 20130225, end: 20140519
  10. EUTIROX [Concomitant]
     Route: 048
     Dates: start: 20130225, end: 20140519
  11. PANTOPRAZOLE [Concomitant]
     Dates: start: 20130225, end: 20140519
  12. NORVASC [Concomitant]
     Route: 048
     Dates: start: 20130225, end: 20140519
  13. LASIX [Concomitant]
     Route: 048
     Dates: start: 20130225, end: 20140519
  14. RANEXA [Concomitant]
     Dosage: PROLONGED RELEASE TAB
     Route: 048
     Dates: start: 20130225, end: 20140519
  15. LUVION [Concomitant]
     Route: 048
     Dates: start: 20130225, end: 20140519
  16. ESKIM [Concomitant]
     Route: 048
     Dates: start: 20130225, end: 20140519

REACTIONS (2)
  - Hypoglycaemia [Recovered/Resolved]
  - Incorrect dose administered [Unknown]
